FAERS Safety Report 10513221 (Version 2)
Quarter: 2014Q4

REPORT INFORMATION
  Report Type: Spontaneous
  Country: AU (occurrence: AU)
  Receive Date: 20141013
  Receipt Date: 20141013
  Transmission Date: 20150528
  Serious: Yes (Other)
  Sender: FDA-Public Use
  Company Number: AU-SHIRE-AU201406440

PATIENT
  Age: 6 Year
  Sex: Male
  Weight: 27.6 kg

DRUGS (2)
  1. NASONEX AQUEOUS [Concomitant]
     Indication: RHINITIS ALLERGIC
     Dosage: 50 ?G, ( BOTH NOSTRILS) 1X/DAY:QD
     Route: 045
  2. VYVANSE [Suspect]
     Active Substance: LISDEXAMFETAMINE DIMESYLATE
     Indication: ATTENTION DEFICIT/HYPERACTIVITY DISORDER
     Dosage: 30 MG, 1X/DAY:QD (EVERY MORNING)
     Route: 048
     Dates: start: 20140911, end: 20140929

REACTIONS (8)
  - Ocular hyperaemia [Recovered/Resolved]
  - Anger [Recovered/Resolved]
  - Irritability [Recovered/Resolved]
  - Rash [Unknown]
  - Swelling face [Unknown]
  - Rhinorrhoea [Recovered/Resolved]
  - Dry mouth [Recovered/Resolved]
  - Urticaria [Recovered/Resolved]

NARRATIVE: CASE EVENT DATE: 20140929
